FAERS Safety Report 18680114 (Version 3)
Quarter: 2021Q2

REPORT INFORMATION
  Report Type: Spontaneous
  Country: US (occurrence: US)
  Receive Date: 20201229
  Receipt Date: 20210602
  Transmission Date: 20210717
  Serious: No
  Sender: FDA-Public Use
  Company Number: US-ELI_LILLY_AND_COMPANY-US202012011735

PATIENT
  Sex: Female
  Weight: 88.5 kg

DRUGS (2)
  1. BARICITINIB. [Suspect]
     Active Substance: BARICITINIB
     Indication: COVID-19
     Dosage: 4MG, DAILY
     Route: 048
     Dates: start: 20201208, end: 20201216
  2. REMDESIVIR. [Concomitant]
     Active Substance: REMDESIVIR
     Indication: PRODUCT USED FOR UNKNOWN INDICATION
     Dosage: UNK
     Route: 065
     Dates: start: 20201207, end: 20201211

REACTIONS (1)
  - Thrombocytosis [Recovered/Resolved]
